FAERS Safety Report 7790593-9 (Version None)
Quarter: 2011Q3

REPORT INFORMATION
  Report Type: 
  Country: None (occurrence: None)
  Receive Date: 20110930
  Receipt Date: 20110927
  Transmission Date: 20111222
  Serious: Yes (Other)
  Sender: FDA-Public Use
  Company Number: PL-PFIZER INC-2011229361

PATIENT
  Sex: Male

DRUGS (4)
  1. METHYLPREDNISOLONE ACETATE [Suspect]
     Dosage: UNK
     Route: 042
  2. METHOTREXATE [Concomitant]
     Dosage: 10 MG/M2, ^BODY SURFACE/WEEKLY^
     Route: 048
  3. PREDNISONE [Suspect]
     Dosage: 1 MG/KG, 1X/DAY
     Route: 048
  4. HYDROXYCHLOROQUINE PHOSPHATE [Concomitant]
     Dosage: 200 MG, 1X/DAY

REACTIONS (3)
  - CALCINOSIS [None]
  - OSTEOPOROSIS [None]
  - MUSCLE ATROPHY [None]
